FAERS Safety Report 7504401-4 (Version None)
Quarter: 2011Q2

REPORT INFORMATION
  Report Type: 
  Country: None (occurrence: None)
  Receive Date: 20110525
  Receipt Date: 20110516
  Transmission Date: 20111010
  Serious: Yes (Other)
  Sender: FDA-Public Use
  Company Number: BR-ROCHE-777583

PATIENT
  Age: 18 Year
  Sex: Male

DRUGS (1)
  1. ISOTRETINOIN [Suspect]
     Route: 065

REACTIONS (4)
  - VOMITING [None]
  - CSF WHITE BLOOD CELL COUNT POSITIVE [None]
  - CSF PROTEIN ABNORMAL [None]
  - HEADACHE [None]
